FAERS Safety Report 18537739 (Version 1)
Quarter: 2020Q4

REPORT INFORMATION
  Report Type: Spontaneous
  Country: RO (occurrence: RO)
  Receive Date: 20201123
  Receipt Date: 20201123
  Transmission Date: 20210114
  Serious: Yes (Other)
  Sender: FDA-Public Use
  Company Number: RO-PFIZER INC-2020457148

PATIENT
  Sex: Female

DRUGS (8)
  1. XELJANZ [Suspect]
     Active Substance: TOFACITINIB CITRATE
     Dosage: 5 MG, 2X/DAY
     Dates: start: 20190301, end: 20200821
  2. CORDARONE [Concomitant]
     Active Substance: AMIODARONE HYDROCHLORIDE
     Dosage: 200 MG
     Dates: start: 20190913
  3. RISEDRONIC ACID [Concomitant]
     Active Substance: RISEDRONIC ACID
     Dosage: 35 MG
     Dates: start: 20070101
  4. XELJANZ [Suspect]
     Active Substance: TOFACITINIB CITRATE
     Dosage: UNK
  5. ACENOCUMAROL [Concomitant]
     Active Substance: ACENOCOUMAROL
     Dosage: 2 MG
     Dates: start: 20190913
  6. METHYLPREDNISOLONE. [Concomitant]
     Active Substance: METHYLPREDNISOLONE
     Dosage: 4 MG
     Dates: start: 20160901
  7. ALFACALCIDOL [Concomitant]
     Active Substance: ALFACALCIDOL
     Dosage: UNK
     Dates: start: 20070101
  8. FOLIC ACID. [Concomitant]
     Active Substance: FOLIC ACID
     Dosage: 5 MG
     Dates: start: 20070110, end: 20190701

REACTIONS (3)
  - C-reactive protein increased [Unknown]
  - Rheumatoid factor increased [Unknown]
  - Intentional dose omission [Unknown]

NARRATIVE: CASE EVENT DATE: 20190912
